FAERS Safety Report 5873510-8 (Version None)
Quarter: 2008Q3

REPORT INFORMATION
  Report Type: 
  Country: None (occurrence: None)
  Receive Date: 20080829
  Receipt Date: 20061206
  Transmission Date: 20090109
  Serious: Yes (Other)
  Sender: FDA-Public Use
  Company Number: 2006-01113FE

PATIENT
  Age: 41 Year
  Sex: Female

DRUGS (1)
  1. MENOGON (MENOGON /01277604/) (MENOTROPHIN) [Suspect]
     Indication: INFERTILITY

REACTIONS (1)
  - OVARIAN CANCER [None]
